FAERS Safety Report 6413492-3 (Version None)
Quarter: 2009Q4

REPORT INFORMATION
  Report Type: 
  Country: None (occurrence: None)
  Receive Date: 20091026
  Receipt Date: 20091014
  Transmission Date: 20100525
  Serious: Yes (Other)
  Sender: FDA-Public Use
  Company Number: PHEH2008US04392

PATIENT
  Sex: Male

DRUGS (2)
  1. AREDIA [Suspect]
     Dates: start: 20011201, end: 20040501
  2. INSULIN [Concomitant]

REACTIONS (11)
  - ANXIETY [None]
  - DENTAL CARIES [None]
  - INFECTION [None]
  - INJURY [None]
  - OSTEONECROSIS [None]
  - PAIN IN JAW [None]
  - PATHOLOGICAL FRACTURE [None]
  - SEQUESTRECTOMY [None]
  - SPEECH DISORDER [None]
  - TOOTH EXTRACTION [None]
  - TOOTHACHE [None]
